FAERS Safety Report 12400615 (Version 2)
Quarter: 2016Q2

REPORT INFORMATION
  Report Type: Spontaneous
  Country: US (occurrence: US)
  Receive Date: 20160525
  Receipt Date: 20160525
  Transmission Date: 20160815
  Serious: No
  Sender: FDA-Public Use
  Company Number: US-SA-2015SA160368

PATIENT
  Age: 63 Year
  Sex: Male

DRUGS (2)
  1. SOLOSTAR [Suspect]
     Active Substance: DEVICE
     Indication: TYPE 2 DIABETES MELLITUS
     Dosage: FREQUENCY:VARIES PER BLOOD SUG
     Dates: start: 2013
  2. LANTUS SOLOSTAR [Suspect]
     Active Substance: INSULIN GLARGINE
     Indication: TYPE 2 DIABETES MELLITUS
     Dosage: DOSE: AROUND 38 UNITS^?FREQUENCY:VARIES PER BLOOD SUG
     Route: 065
     Dates: start: 2013

REACTIONS (8)
  - Nasal congestion [Unknown]
  - Drug administration error [Unknown]
  - Back disorder [Unknown]
  - Musculoskeletal pain [Unknown]
  - Hypersensitivity [Unknown]
  - Blood glucose decreased [Unknown]
  - Gait disturbance [Unknown]
  - Blood glucose increased [Unknown]

NARRATIVE: CASE EVENT DATE: 201508
